FAERS Safety Report 16835793 (Version 1)
Quarter: 2019Q3

REPORT INFORMATION
  Report Type: Report from Study
  Country: US (occurrence: US)
  Receive Date: 20190920
  Receipt Date: 20190920
  Transmission Date: 20191005
  Serious: Yes (Other)
  Sender: FDA-Public Use
  Company Number: US-GLAXOSMITHKLINE-2019-TSO02769-US

PATIENT
  Sex: Female

DRUGS (56)
  1. NIRAPARIB [Suspect]
     Active Substance: NIRAPARIB
     Indication: OVARIAN CANCER
     Dosage: 200 MG, QD
     Route: 048
     Dates: start: 20190329
  2. FAMVIR [Concomitant]
     Active Substance: FAMCICLOVIR
     Indication: PRODUCT USED FOR UNKNOWN INDICATION
     Dosage: 500 MG, ORAL, THREE TIMES A DAY
     Route: 048
     Dates: start: 20190828
  3. ATIVAN [Concomitant]
     Active Substance: LORAZEPAM
     Indication: RESTLESS LEGS SYNDROME
     Dosage: 1 MG, TID AS NEEDED
     Dates: start: 20190908
  4. AMPICILLIN [Concomitant]
     Active Substance: AMPICILLIN
     Dosage: 500 MG, EVERY SIX HOURS AS NEEDED
     Route: 048
     Dates: start: 20120430
  5. OMEPRAZOLE. [Concomitant]
     Active Substance: OMEPRAZOLE
     Indication: PRODUCT USED FOR UNKNOWN INDICATION
     Dosage: 40 MG, QD
     Route: 048
     Dates: start: 20190511
  6. ZOFRAN [Concomitant]
     Active Substance: ONDANSETRON HYDROCHLORIDE
     Dosage: 4 MG, EVERY 4 HOURS
     Route: 048
     Dates: start: 20170215
  7. ANUSOL-HC [Concomitant]
     Indication: PRODUCT USED FOR UNKNOWN INDICATION
     Dosage: ONE APPLICATION TOPICAL, THREE TIMES A DAY
     Dates: start: 20170323
  8. LYRICA [Concomitant]
     Active Substance: PREGABALIN
     Indication: PRODUCT USED FOR UNKNOWN INDICATION
     Dosage: 50 MG, TID
     Route: 048
     Dates: start: 20150428
  9. LORAZEPAM. [Concomitant]
     Active Substance: LORAZEPAM
     Indication: TERMINAL AGITATION
     Dosage: 1 MG, EVERY FOUR HOURS AS NEEDED
     Route: 048
     Dates: start: 20190909
  10. BACTRIM DS [Concomitant]
     Active Substance: SULFAMETHOXAZOLE\TRIMETHOPRIM
     Indication: PRODUCT USED FOR UNKNOWN INDICATION
     Dosage: 1 TABLET (800-160 MG )
     Route: 048
     Dates: start: 20190522
  11. COMPAZINE [Concomitant]
     Active Substance: PROCHLORPERAZINE MALEATE
     Dosage: 10 MG, EVERY SIX HOURS
     Route: 048
     Dates: start: 20170215
  12. ALLOPURINOL. [Concomitant]
     Active Substance: ALLOPURINOL
     Indication: GOUT
     Dosage: ONE TABLET
     Route: 048
     Dates: start: 20180919
  13. FLUCONAZOLE. [Concomitant]
     Active Substance: FLUCONAZOLE
     Dosage: 200 MG, DAILY
     Route: 048
     Dates: start: 20170222
  14. AUGMENTIN [Concomitant]
     Active Substance: AMOXICILLIN\CLAVULANATE POTASSIUM
     Indication: PRODUCT USED FOR UNKNOWN INDICATION
     Dosage: 875-125 MG TABLET
     Route: 048
     Dates: start: 20170302
  15. ATIVAN [Concomitant]
     Active Substance: LORAZEPAM
     Dosage: 1 MG, QID
     Route: 048
     Dates: start: 20120509
  16. COMPAZINE [Concomitant]
     Active Substance: PROCHLORPERAZINE MALEATE
     Indication: NAUSEA
     Dosage: 10 MG, EVERY SIX HOURS
     Dates: start: 20190311
  17. LYNPARZA [Concomitant]
     Active Substance: OLAPARIB
     Indication: PRODUCT USED FOR UNKNOWN INDICATION
     Dosage: 300 MG, BID
     Route: 048
     Dates: start: 20190308
  18. FLUCONAZOLE. [Concomitant]
     Active Substance: FLUCONAZOLE
     Indication: PRODUCT USED FOR UNKNOWN INDICATION
     Dosage: 100 MG, QD (1 TABLET DAILY)
     Route: 048
     Dates: start: 20170413
  19. KEFLEX [Concomitant]
     Active Substance: CEPHALEXIN
     Indication: PRODUCT USED FOR UNKNOWN INDICATION
     Dosage: 500 MG, QID
     Route: 048
     Dates: start: 20170223
  20. MIRALAX [Concomitant]
     Active Substance: POLYETHYLENE GLYCOL 3350
     Indication: PRODUCT USED FOR UNKNOWN INDICATION
     Dosage: EVERYDAY, AS NEEDED
     Dates: start: 20130510
  21. MAGNESIUM [Concomitant]
     Active Substance: MAGNESIUM
     Indication: PRODUCT USED FOR UNKNOWN INDICATION
     Dosage: TWO TABLETS BEFORE SLEEP
     Route: 048
     Dates: start: 20190617
  22. DIFLUCAN [Concomitant]
     Active Substance: FLUCONAZOLE
     Indication: PRODUCT USED FOR UNKNOWN INDICATION
     Dosage: 100 MG, QD (FOR 10 DAYS)
     Route: 048
     Dates: start: 20190809
  23. AMPICILLIN [Concomitant]
     Active Substance: AMPICILLIN
     Indication: PRODUCT USED FOR UNKNOWN INDICATION
     Dosage: 500 MG, QID
     Route: 048
     Dates: start: 20190520
  24. AMPICILLIN [Concomitant]
     Active Substance: AMPICILLIN
     Dosage: 500 MG, QID
     Route: 048
     Dates: start: 20190426
  25. COMPAZINE [Concomitant]
     Active Substance: PROCHLORPERAZINE MALEATE
     Dosage: 10 MG, EVERY 4 HOURS AS NEEDED
     Dates: start: 20120413
  26. MIRAPEX [Concomitant]
     Active Substance: PRAMIPEXOLE DIHYDROCHLORIDE
     Indication: PRODUCT USED FOR UNKNOWN INDICATION
     Dosage: TWO TIMES A WEEK, AS NEEDED
     Route: 048
     Dates: start: 20180115
  27. NEURONTIN [Concomitant]
     Active Substance: GABAPENTIN
     Dosage: 300 MG, AS NEEDED
     Route: 048
     Dates: start: 20120808
  28. MORPHINE CONCENTRATE [Concomitant]
     Indication: PAIN
     Dosage: 0.5 ML, EVERY 2 HOURS
     Route: 048
     Dates: start: 20190909
  29. MAGIC MOUTHWASH [Concomitant]
     Active Substance: DIPHENHYDRAMINE HYDROCHLORIDE\LIDOCAINE HYDROCHLORIDE\NYSTATIN
     Dosage: 5 ML, EVERY THREE HOURS AS NEEDED
     Dates: start: 20170412
  30. ZOFRAN [Concomitant]
     Active Substance: ONDANSETRON HYDROCHLORIDE
     Indication: NAUSEA
     Dosage: 4 MG, EVERY 4 HOURS
     Dates: start: 20190311
  31. ZOFRAN [Concomitant]
     Active Substance: ONDANSETRON HYDROCHLORIDE
     Dosage: 8 MG, BID, AS NEEDED
     Route: 048
     Dates: start: 20120423
  32. CITALOPRAM [Concomitant]
     Active Substance: CITALOPRAM HYDROBROMIDE
     Indication: HOT FLUSH
     Dosage: TWO TABLETS  QD
     Route: 048
     Dates: start: 20190306
  33. SENNOSIDES/DOCUSATE [Concomitant]
     Indication: PRODUCT USED FOR UNKNOWN INDICATION
     Dosage: TWO TABLETS, AS NEEDED
     Route: 048
     Dates: start: 20190115
  34. LASIX [Concomitant]
     Active Substance: FUROSEMIDE
     Indication: PRODUCT USED FOR UNKNOWN INDICATION
     Dosage: 20 MG, DAILY, AS NEEDED
     Route: 048
     Dates: start: 20170313
  35. K-DUR [Concomitant]
     Active Substance: POTASSIUM CHLORIDE
     Indication: PERIPHERAL SWELLING
     Dosage: 20 MEQ, QD
     Route: 048
     Dates: start: 20150805
  36. DEXAMETHASONE. [Concomitant]
     Active Substance: DEXAMETHASONE
     Indication: PRODUCT USED FOR UNKNOWN INDICATION
     Dosage: 4 MG, (5 TABS NIGHT BEFORE CHEMO AND 5 TABS MORNING OF CHEMO)
     Route: 048
     Dates: start: 20120413
  37. NIRAPARIB [Suspect]
     Active Substance: NIRAPARIB
     Dosage: 200 MG, QD
     Route: 048
     Dates: start: 20190404
  38. AZITHROMYCIN ANHYDROUS. [Concomitant]
     Active Substance: AZITHROMYCIN ANHYDROUS
     Indication: PRODUCT USED FOR UNKNOWN INDICATION
     Dosage: 250 MG, UNK
     Route: 048
     Dates: start: 20190320
  39. CIPROFLOXACIN. [Concomitant]
     Active Substance: CIPROFLOXACIN
     Indication: PRODUCT USED FOR UNKNOWN INDICATION
     Dosage: 500 MG, BID (FOR 10 DAYS)
     Route: 048
     Dates: start: 20120427
  40. MORPHINE CONCENTRATE [Concomitant]
     Indication: TERMINAL AGITATION
     Dosage: 5 MG, EVERY 2 HOURS AS NEEDED
     Route: 048
     Dates: start: 20190909
  41. HALDOL [Concomitant]
     Active Substance: HALOPERIDOL
     Indication: TERMINAL AGITATION
     Dosage: 1 MG, EVERY FOUR HOURS AS NEEDED
     Route: 048
     Dates: start: 20190909
  42. LASIX [Concomitant]
     Active Substance: FUROSEMIDE
     Dosage: 20 MG, BID
     Route: 048
     Dates: start: 20150805
  43. NEURONTIN [Concomitant]
     Active Substance: GABAPENTIN
     Indication: PRODUCT USED FOR UNKNOWN INDICATION
     Dosage: 300 MG, QID
     Route: 048
     Dates: start: 20120913
  44. LORTAB [Concomitant]
     Active Substance: ACETAMINOPHEN\HYDROCODONE BITARTRATE
     Indication: PRODUCT USED FOR UNKNOWN INDICATION
     Dosage: 5 MG, EVERY 4 HOURS AS NEEDED
     Route: 048
     Dates: start: 20120808
  45. NIRAPARIB [Suspect]
     Active Substance: NIRAPARIB
     Dosage: 200 MG, QD
     Dates: start: 20190405, end: 20190619
  46. MORPHINE CONCENTRATE [Concomitant]
     Dosage: 0.25 ML, EVERY THREE HOURS
     Route: 048
     Dates: start: 20190806
  47. MAGIC MOUTHWASH [Concomitant]
     Active Substance: DIPHENHYDRAMINE HYDROCHLORIDE\LIDOCAINE HYDROCHLORIDE\NYSTATIN
     Indication: STOMATITIS
     Dosage: 10 ML, EVERY TWO HOURS AS NEEDED
     Dates: start: 20190828
  48. ACYCLOVIR. [Concomitant]
     Active Substance: ACYCLOVIR
     Indication: PRODUCT USED FOR UNKNOWN INDICATION
     Dosage: 400 MG, TID
     Route: 048
     Dates: start: 20190828
  49. LEVAQUIN [Concomitant]
     Active Substance: LEVOFLOXACIN
     Indication: URINARY TRACT INFECTION
     Dosage: 500 MG (ONE TABLET DAILY)
     Route: 048
     Dates: start: 20190619
  50. LEVAQUIN [Concomitant]
     Active Substance: LEVOFLOXACIN
     Dosage: 750 MG, QD
     Route: 048
     Dates: start: 20130621
  51. NITROFURANTOIN MONOHYDRATE [Concomitant]
     Active Substance: NITROFURANTOIN MONOHYDRATE
     Indication: PRODUCT USED FOR UNKNOWN INDICATION
     Dosage: 100 MG, BID
     Route: 048
     Dates: start: 20190612
  52. BACTRIM DS [Concomitant]
     Active Substance: SULFAMETHOXAZOLE\TRIMETHOPRIM
     Dosage: 1 TABLET
     Route: 048
     Dates: start: 20130408
  53. CITALOPRAM [Concomitant]
     Active Substance: CITALOPRAM HYDROBROMIDE
     Dosage: INCREASE TO 2 TABLETS DAILY
     Dates: start: 20190317
  54. REQUIP [Concomitant]
     Active Substance: ROPINIROLE HYDROCHLORIDE
     Indication: PRODUCT USED FOR UNKNOWN INDICATION
     Dosage: 1 TABLET DAILY BEFORE SLEEP
     Route: 048
     Dates: start: 20181101
  55. MOBIC [Concomitant]
     Active Substance: MELOXICAM
     Indication: PRODUCT USED FOR UNKNOWN INDICATION
     Dosage: ONE TABLET AS NEEDED
     Route: 048
     Dates: start: 20180115
  56. PERCOCET [Concomitant]
     Active Substance: ACETAMINOPHEN\OXYCODONE HYDROCHLORIDE
     Indication: PRODUCT USED FOR UNKNOWN INDICATION
     Dosage: 5 MG, EVERY HOURS AS NEEDED (1 TO 2 TABLETS)
     Route: 048
     Dates: start: 20120913

REACTIONS (6)
  - Glioblastoma multiforme [Unknown]
  - Fatigue [Unknown]
  - Asthenia [Unknown]
  - Mental impairment [Unknown]
  - Nausea [Unknown]
  - Dizziness [Unknown]
